FAERS Safety Report 25968999 (Version 1)
Quarter: 2025Q4

REPORT INFORMATION
  Report Type: Spontaneous
  Country: CN (occurrence: CN)
  Receive Date: 20251028
  Receipt Date: 20251028
  Transmission Date: 20260117
  Serious: Yes (Life-Threatening, Other)
  Sender: PFIZER
  Company Number: CN-PFIZER INC-PV202500125652

PATIENT
  Age: 9 Month
  Sex: Female

DRUGS (3)
  1. MEROPENEM [Suspect]
     Active Substance: MEROPENEM
     Indication: Acinetobacter infection
     Dosage: UNK
  2. LEVOFLOXACIN [Suspect]
     Active Substance: LEVOFLOXACIN
     Indication: Acinetobacter infection
     Dosage: UNK
  3. POLYMYXIN [Suspect]
     Active Substance: POLYMYXIN
     Indication: Acinetobacter infection
     Dosage: UNK

REACTIONS (1)
  - Drug ineffective [Unknown]
